FAERS Safety Report 19656525 (Version 1)
Quarter: 2021Q3

REPORT INFORMATION
  Report Type: Spontaneous
  Country: JP (occurrence: JP)
  Receive Date: 20210804
  Receipt Date: 20210804
  Transmission Date: 20211014
  Serious: Yes (Hospitalization, Other)
  Sender: FDA-Public Use
  Company Number: JP-PFIZER INC-202100951923

PATIENT
  Age: 68 Year
  Sex: Female

DRUGS (2)
  1. METHOTREXATE SODIUM. [Suspect]
     Active Substance: METHOTREXATE SODIUM
     Dosage: 12 MG, WEEKLY
  2. PREDNISOLONE. [Concomitant]
     Active Substance: PREDNISOLONE
     Dosage: 10  MG, DAILY

REACTIONS (4)
  - Fungal pharyngitis [Recovering/Resolving]
  - Pharyngitis bacterial [Recovering/Resolving]
  - Lymphoproliferative disorder [Recovering/Resolving]
  - Immunosuppression [Recovering/Resolving]
